FAERS Safety Report 5500327-6 (Version None)
Quarter: 2007Q4

REPORT INFORMATION
  Report Type: 
  Country: None (occurrence: None)
  Receive Date: 20071025
  Receipt Date: 20071009
  Transmission Date: 20080405
  Serious: Yes (Death)
  Sender: FDA-Public Use
  Company Number: 162909ISR

PATIENT
  Age: 5 Year
  Sex: Male

DRUGS (5)
  1. CARBOPLATIN [Suspect]
     Indication: RETINOBLASTOMA BILATERAL
     Dosage: PARENTERAL
     Route: 051
  2. ETOPOSIDE [Suspect]
     Indication: RETINOBLASTOMA BILATERAL
     Dosage: (1050 MG/M2,CYCLICAL)
  3. CYCLOPHOSPHAMIDE [Suspect]
     Indication: RETINOBLASTOMA BILATERAL
     Dosage: (7800 MG/M2)
  4. IDARUBICIN HCL [Suspect]
     Indication: RETINOBLASTOMA BILATERAL
  5. VINCRISTINE [Suspect]
     Indication: RETINOBLASTOMA BILATERAL

REACTIONS (2)
  - ACUTE MYELOID LEUKAEMIA [None]
  - TREATMENT RELATED SECONDARY MALIGNANCY [None]
